FAERS Safety Report 12424528 (Version 1)
Quarter: 2016Q2

REPORT INFORMATION
  Report Type: Spontaneous
  Country: US (occurrence: US)
  Receive Date: 20160601
  Receipt Date: 20160601
  Transmission Date: 20160815
  Serious: No
  Sender: FDA-Public Use
  Company Number: US-NOVEN PHARMACEUTICALS, INC.-US2016000123

PATIENT

DRUGS (4)
  1. CLONIDINE. [Concomitant]
     Active Substance: CLONIDINE
  2. DAYTRANA [Suspect]
     Active Substance: METHYLPHENIDATE
     Indication: ATTENTION DEFICIT/HYPERACTIVITY DISORDER
     Dosage: 30 MG, UNKNOWN
     Route: 062
  3. DAYTRANA [Suspect]
     Active Substance: METHYLPHENIDATE
     Dosage: CUTTING 20MG PATCH AND APPLYING IT WITH ANOTHER 20MG PATCH TO MAKE UP FOR 30MG, UNKNOWN
     Route: 062
  4. ZOLOFT [Concomitant]
     Active Substance: SERTRALINE HYDROCHLORIDE

REACTIONS (2)
  - Wrong technique in product usage process [Unknown]
  - No adverse event [Unknown]
